FAERS Safety Report 9158340 (Version 1)
Quarter: 2013Q1

REPORT INFORMATION
  Report Type: Spontaneous
  Country: GB (occurrence: None)
  Receive Date: 20130226
  Receipt Date: 20130226
  Transmission Date: 20140127
  Serious: Yes (Death)
  Sender: FDA-Public Use
  Company Number: 2013MP100083

PATIENT
  Age: 61 Year
  Sex: 0

DRUGS (1)
  1. BRENTUXIMAB VEDOTIN [Suspect]

REACTIONS (1)
  - Sepsis [None]
